FAERS Safety Report 5265180-7 (Version None)
Quarter: 2007Q1

REPORT INFORMATION
  Report Type: 
  Country: None (occurrence: None)
  Receive Date: 20061121
  Receipt Date: 20060929
  Transmission Date: 20070707
  Serious: No
  Sender: FDA-Public Use
  Company Number: TPA2006A01692

PATIENT
  Age: 90 Year
  Sex: Male
  Weight: 68.0396 kg

DRUGS (2)
  1. ROZEREM [Suspect]
     Indication: INSOMNIA
     Dosage: 8 MG, HS, PER ORAL
     Route: 048
     Dates: start: 20060601
  2. TORSEMIDE [Concomitant]

REACTIONS (1)
  - INITIAL INSOMNIA [None]
